FAERS Safety Report 6081740-8 (Version None)
Quarter: 2009Q1

REPORT INFORMATION
  Report Type: 
  Country: None (occurrence: None)
  Receive Date: 20090127
  Receipt Date: 20081110
  Transmission Date: 20090719
  Serious: Yes (Other)
  Sender: FDA-Public Use
  Company Number: US-WYE-H06811908

PATIENT
  Age: 69 Year
  Sex: Female
  Weight: 81.72 kg

DRUGS (5)
  1. ADVIL COLD AND SINUS [Suspect]
     Indication: NASOPHARYNGITIS
     Dosage: 1 CAPSULE 2X PER 1 DAY, ORAL
     Route: 048
     Dates: start: 20081025, end: 20081025
  2. ADVIL COLD AND SINUS [Suspect]
     Indication: SINUS DISORDER
     Dosage: 1 CAPSULE 2X PER 1 DAY, ORAL
     Route: 048
     Dates: start: 20081025, end: 20081025
  3. ALLOPURINOL [Concomitant]
  4. LEVOTHYROXINE SODIUM [Concomitant]
  5. ATENOLOL [Concomitant]

REACTIONS (2)
  - INSOMNIA [None]
  - PSYCHOMOTOR HYPERACTIVITY [None]
